FAERS Safety Report 10770880 (Version 1)
Quarter: 2015Q1

REPORT INFORMATION
  Report Type: Spontaneous
  Country: US (occurrence: US)
  Receive Date: 20150206
  Receipt Date: 20150206
  Transmission Date: 20150721
  Serious: Yes (Death)
  Sender: FDA-Public Use
  Company Number: US-PERRIGO-15US001579

PATIENT
  Age: 35 Year
  Sex: Male

DRUGS (6)
  1. COCAINE [Suspect]
     Active Substance: COCAINE
     Indication: DRUG ABUSE
     Dosage: UNKNOWN, UNKNOWN
     Route: 048
  2. DOXYLAMINE SUCCINATE 25 MG 441 [Suspect]
     Active Substance: DOXYLAMINE SUCCINATE
     Indication: DRUG ABUSE
     Dosage: UNKNOWN, UNKNOWN
     Route: 048
  3. CLONAZEPAM. [Suspect]
     Active Substance: CLONAZEPAM
     Indication: DRUG ABUSE
     Dosage: UNKNOWN, UNKNOWN
     Route: 048
  4. METHADONE [Suspect]
     Active Substance: METHADONE HYDROCHLORIDE
     Indication: DRUG ABUSE
     Dosage: UNKNOWN, UNKNOWN
     Route: 048
  5. CITALOPRAM [Suspect]
     Active Substance: CITALOPRAM HYDROBROMIDE
     Indication: DRUG ABUSE
     Dosage: UNKNOWN, UNKNOWN
     Route: 048
  6. ALPRAZOLAM. [Suspect]
     Active Substance: ALPRAZOLAM
     Indication: DRUG ABUSE
     Dosage: UNKNOWN, UNKNOWN
     Route: 048

REACTIONS (2)
  - Drug abuse [None]
  - Death [Fatal]
